FAERS Safety Report 15567308 (Version 2)
Quarter: 2018Q4

REPORT INFORMATION
  Report Type: Spontaneous
  Country: JP (occurrence: JP)
  Receive Date: 20181030
  Receipt Date: 20181105
  Transmission Date: 20190205
  Serious: Yes (Death, Hospitalization, Other)
  Sender: FDA-Public Use
  Company Number: JP-SHIRE-JP201841418AA

PATIENT
  Age: 50 Year
  Sex: Male
  Weight: 57.6 kg

DRUGS (15)
  1. GAMMAGARD S/D [Suspect]
     Active Substance: HUMAN IMMUNOGLOBULIN G
     Indication: EOSINOPHILIC GRANULOMATOSIS WITH POLYANGIITIS
     Dosage: UNK
     Route: 042
     Dates: start: 201611, end: 201611
  2. PREDNISOLONE. [Concomitant]
     Active Substance: PREDNISOLONE
     Dosage: 60 MG/DAY
     Route: 065
     Dates: start: 201612, end: 20161219
  3. PREDNISOLONE. [Concomitant]
     Active Substance: PREDNISOLONE
     Dosage: 60 MG/DAY
     Route: 041
     Dates: start: 201701, end: 20170115
  4. PREDNISOLONE. [Concomitant]
     Active Substance: PREDNISOLONE
     Dosage: 60 MG/DAY
     Route: 065
     Dates: start: 201611, end: 201611
  5. GAMMAGARD S/D [Suspect]
     Active Substance: HUMAN IMMUNOGLOBULIN G
     Dosage: UNK
     Route: 042
     Dates: start: 201612, end: 201612
  6. PREDNISOLONE. [Concomitant]
     Active Substance: PREDNISOLONE
     Dosage: 60 MG/DAY
     Route: 041
     Dates: start: 201701
  7. MEROPENEM. [Concomitant]
     Active Substance: MEROPENEM
     Indication: INFECTION
     Dosage: UNK
     Route: 065
     Dates: start: 20161220
  8. PREDNISOLONE. [Concomitant]
     Active Substance: PREDNISOLONE
     Indication: EOSINOPHILIC GRANULOMATOSIS WITH POLYANGIITIS
     Dosage: UNK MG, UNK
     Route: 065
     Dates: start: 201611, end: 201611
  9. PREDNISOLONE. [Concomitant]
     Active Substance: PREDNISOLONE
     Dosage: 60 MG/DAY
     Route: 065
     Dates: start: 201612, end: 201612
  10. PREDNISOLONE. [Concomitant]
     Active Substance: PREDNISOLONE
     Dosage: 60 MG/DAY
     Route: 041
     Dates: start: 20161220, end: 201701
  11. CICLOSPORIN [Concomitant]
     Active Substance: CYCLOSPORINE
     Indication: EOSINOPHILIC GRANULOMATOSIS WITH POLYANGIITIS
     Dosage: UNK
     Route: 041
     Dates: start: 201612, end: 201701
  12. PREDNISOLONE. [Concomitant]
     Active Substance: PREDNISOLONE
     Dosage: 60 MG/DAY
     Route: 065
     Dates: start: 201611, end: 201612
  13. PREDNISOLONE. [Concomitant]
     Active Substance: PREDNISOLONE
     Dosage: 60 MG/DAY
     Route: 041
     Dates: start: 201701, end: 201701
  14. CYCLOPHOSPHAMIDE. [Concomitant]
     Active Substance: CYCLOPHOSPHAMIDE
     Indication: EOSINOPHILIC GRANULOMATOSIS WITH POLYANGIITIS
     Dosage: UNK
     Route: 042
     Dates: start: 201612, end: 201612
  15. PREDNISOLONE. [Concomitant]
     Active Substance: PREDNISOLONE
     Dosage: 60 MG/DAY
     Route: 041
     Dates: start: 20170116, end: 201701

REACTIONS (10)
  - Infection [Unknown]
  - Colitis ischaemic [Unknown]
  - Hepatic ischaemia [Unknown]
  - Multiple organ dysfunction syndrome [Fatal]
  - Renal infarct [Unknown]
  - Decreased appetite [Unknown]
  - Eosinophilic granulomatosis with polyangiitis [Unknown]
  - Small intestinal perforation [Unknown]
  - Blood pressure decreased [Unknown]
  - Nausea [Unknown]

NARRATIVE: CASE EVENT DATE: 201612
